FAERS Safety Report 16391964 (Version 1)
Quarter: 2019Q2

REPORT INFORMATION
  Report Type: Spontaneous
  Country: US (occurrence: US)
  Receive Date: 20190605
  Receipt Date: 20190605
  Transmission Date: 20190711
  Serious: No
  Sender: FDA-Public Use
  Company Number: US-ROCHE-2225096

PATIENT
  Sex: Male

DRUGS (1)
  1. OCREVUS [Suspect]
     Active Substance: OCRELIZUMAB
     Indication: RELAPSING MULTIPLE SCLEROSIS
     Dosage: IN JUL 300 AND THEN 300 AFTER 2WKS N WILL GET JAN 2019
     Route: 042
     Dates: start: 20180715

REACTIONS (1)
  - Tremor [Not Recovered/Not Resolved]
